FAERS Safety Report 6888503-1 (Version None)
Quarter: 2010Q3

REPORT INFORMATION
  Report Type: 
  Country: None (occurrence: None)
  Receive Date: 20100730
  Receipt Date: 20100719
  Transmission Date: 20110219
  Serious: Yes (Other)
  Sender: FDA-Public Use
  Company Number: PHHY2010US47204

PATIENT
  Sex: Female

DRUGS (8)
  1. RECLAST [Suspect]
  2. SYNTHROID [Concomitant]
  3. PREDNISONE [Concomitant]
  4. PREVACID [Concomitant]
  5. UNIPHYL [Concomitant]
  6. PROVENTIL-HFA [Concomitant]
  7. CALCIUM [Concomitant]
  8. ALBUTEROL [Concomitant]

REACTIONS (11)
  - ARTHRALGIA [None]
  - CHILLS [None]
  - DEHYDRATION [None]
  - DIARRHOEA [None]
  - EYE DISORDER [None]
  - FATIGUE [None]
  - MALAISE [None]
  - MIGRAINE [None]
  - NAUSEA [None]
  - PAIN IN EXTREMITY [None]
  - PYREXIA [None]
